FAERS Safety Report 9145988 (Version 1)
Quarter: 2013Q1

REPORT INFORMATION
  Report Type: Spontaneous
  Country: HU (occurrence: HU)
  Receive Date: 20130307
  Receipt Date: 20130307
  Transmission Date: 20140127
  Serious: Yes (Other)
  Sender: FDA-Public Use
  Company Number: HU-ELI_LILLY_AND_COMPANY-HU201302009372

PATIENT
  Age: 39 Year
  Sex: Female

DRUGS (1)
  1. OLANZAPINE [Suspect]
     Dosage: 300 MG, MONTHLY (1/M)
     Route: 030
     Dates: start: 201205, end: 201302

REACTIONS (2)
  - Abscess [Not Recovered/Not Resolved]
  - Drug interaction [Unknown]
